FAERS Safety Report 9973197 (Version 2)
Quarter: 2014Q1

REPORT INFORMATION
  Report Type: Report from Study
  Country: US (occurrence: US)
  Receive Date: 20140306
  Receipt Date: 20140306
  Transmission Date: 20141002
  Serious: No
  Sender: FDA-Public Use
  Company Number: US-ABBVIE-13P-163-1144186-00

PATIENT
  Age: 53 Year
  Sex: Male

DRUGS (5)
  1. HUMIRA [Suspect]
     Indication: PSORIASIS
     Dosage: DAY 1
     Dates: start: 20130824, end: 20130824
  2. HUMIRA [Suspect]
     Dates: start: 20130831, end: 20130831
  3. HUMIRA [Suspect]
  4. METFORMIN [Concomitant]
     Indication: DIABETES MELLITUS
  5. METOPROLOL [Concomitant]
     Indication: HYPERTENSION

REACTIONS (1)
  - Drug effect decreased [Recovering/Resolving]
